FAERS Safety Report 5553957-X (Version None)
Quarter: 2007Q4

REPORT INFORMATION
  Report Type: 
  Country: None (occurrence: None)
  Receive Date: 20071213
  Receipt Date: 20071207
  Transmission Date: 20080405
  Serious: Yes (Hospitalization)
  Sender: FDA-Public Use
  Company Number: US-ELI_LILLY_AND_COMPANY-US200712001598

PATIENT
  Sex: Female
  Weight: 92.971 kg

DRUGS (14)
  1. BYETTA [Suspect]
     Dosage: 5 UG, 2/D
     Route: 058
     Dates: start: 20050101, end: 20050101
  2. BYETTA [Suspect]
     Dosage: 10 UG, 2/D
     Route: 058
     Dates: start: 20050101, end: 20060501
  3. HUMALOG [Concomitant]
     Dosage: 4 U, 2/D
     Route: 058
  4. HUMALOG [Concomitant]
     Dosage: 2 U, EACH EVENING
     Route: 058
  5. ACTOS [Concomitant]
     Dosage: 45 MG, DAILY (1/D)
     Route: 048
  6. ACTOS [Concomitant]
     Dosage: 15 MG, DAILY (1/D)
     Route: 048
  7. AMARYL [Concomitant]
     Dosage: 8 MG, DAILY (1/D)
     Route: 048
  8. LANTUS [Concomitant]
     Dosage: UNK, UNKNOWN
     Dates: start: 20060501
  9. GLUCOTROL [Concomitant]
     Dosage: UNK, UNKNOWN
  10. FUROSEMIDE [Concomitant]
     Indication: FLUID RETENTION
     Dosage: 40 MG, DAILY (1/D)
     Route: 048
  11. OMEPRAZOLE [Concomitant]
     Indication: HIATUS HERNIA
     Dosage: 20 MG, DAILY (1/D)
     Route: 048
  12. COZAAR [Concomitant]
     Indication: HYPERTENSION
     Dosage: 50 MG, DAILY (1/D)
     Route: 048
  13. LOVASTATIN [Concomitant]
     Indication: BLOOD CHOLESTEROL INCREASED
     Dosage: 20 MG, DAILY (1/D)
     Route: 048
  14. DARVOCET [Concomitant]
     Indication: INTERVERTEBRAL DISC PROTRUSION
     Dosage: UNK, UNKNOWN

REACTIONS (7)
  - ABDOMINAL DISTENSION [None]
  - ABDOMINAL PAIN UPPER [None]
  - BLOOD GLUCOSE ABNORMAL [None]
  - CONSTIPATION [None]
  - DIARRHOEA [None]
  - PRESYNCOPE [None]
  - WEIGHT DECREASED [None]
